FAERS Safety Report 8613613-8 (Version None)
Quarter: 2012Q3

REPORT INFORMATION
  Report Type: 
  Country: None (occurrence: None)
  Receive Date: 20120823
  Receipt Date: 20120809
  Transmission Date: 20120928
  Serious: No
  Sender: FDA-Public Use
  Company Number: DE-009507513-2012SP032652

PATIENT

DRUGS (8)
  1. ACETYLCYSTEINE [Concomitant]
     Indication: PRODUCT USED FOR UNKNOWN INDICATION
     Dosage: 600 MG, QD
     Dates: start: 20110328, end: 20120405
  2. ASENAPINE MALEATE [Suspect]
     Indication: PRODUCT USED FOR UNKNOWN INDICATION
     Dosage: DOSE: 0-15 MG
     Route: 048
     Dates: start: 20120110, end: 20120131
  3. ASENAPINE MALEATE [Interacting]
     Dosage: 15 MG, QD
     Route: 048
     Dates: start: 20120326, end: 20120402
  4. ASENAPINE MALEATE [Interacting]
     Dosage: 10 MG, QD
     Route: 048
     Dates: start: 20120403, end: 20120404
  5. PAROXETINE [Interacting]
     Dosage: 10 UNK, UNK
     Route: 048
     Dates: start: 20120410, end: 20120418
  6. ASENAPINE MALEATE [Interacting]
     Dosage: 20 MG, QD
     Route: 048
     Dates: start: 20120201, end: 20120325
  7. ASENAPINE MALEATE [Interacting]
     Dosage: 5 MG, QD
     Route: 048
     Dates: start: 20120405, end: 20120405
  8. PAROXETINE [Interacting]
     Indication: PRODUCT USED FOR UNKNOWN INDICATION
     Dosage: 10 MG, QD
     Route: 048
     Dates: start: 20120110, end: 20120315

REACTIONS (4)
  - DYSPHAGIA [None]
  - TARDIVE DYSKINESIA [None]
  - NO ADVERSE EVENT [None]
  - DIZZINESS [None]
